FAERS Safety Report 9265670 (Version 1)
Quarter: 2013Q2

REPORT INFORMATION
  Report Type: Report from Study
  Country: US (occurrence: US)
  Receive Date: 20130501
  Receipt Date: 20130501
  Transmission Date: 20140414
  Serious: Yes (Other)
  Sender: FDA-Public Use
  Company Number: US-BAYER-2013-047541

PATIENT
  Age: 81 Year
  Sex: Female

DRUGS (2)
  1. STIVARGA [Suspect]
     Indication: COLON CANCER
     Dosage: 40 MG, 4 TABLETS, DAILY
     Route: 048
     Dates: start: 20130404, end: 20130421
  2. STIVARGA [Suspect]
     Indication: LUNG NEOPLASM MALIGNANT

REACTIONS (5)
  - Fatigue [Not Recovered/Not Resolved]
  - Rash generalised [Not Recovered/Not Resolved]
  - Drug hypersensitivity [None]
  - Dysphonia [Not Recovered/Not Resolved]
  - Off label use [None]
